FAERS Safety Report 11023454 (Version 1)
Quarter: 2015Q2

REPORT INFORMATION
  Report Type: Spontaneous
  Country: US (occurrence: US)
  Receive Date: 20150413
  Receipt Date: 20150413
  Transmission Date: 20150821
  Serious: No
  Sender: FDA-Public Use
  Company Number: US-PFIZER INC-2015121650

PATIENT
  Age: 60 Year
  Sex: Female
  Weight: 73 kg

DRUGS (1)
  1. CELEBREX [Suspect]
     Active Substance: CELECOXIB
     Indication: ARTHRALGIA
     Dosage: 200 MG, ONCE DAILY

REACTIONS (3)
  - Gastrooesophageal reflux disease [Unknown]
  - Abdominal discomfort [Unknown]
  - Dyspepsia [Recovered/Resolved]
